FAERS Safety Report 9691118 (Version 1)
Quarter: 2013Q4

REPORT INFORMATION
  Report Type: Spontaneous
  Country: US (occurrence: US)
  Receive Date: 20131115
  Receipt Date: 20131115
  Transmission Date: 20140711
  Serious: Yes (Other)
  Sender: FDA-Public Use
  Company Number: US-BRISTOL-MYERS SQUIBB COMPANY-19801497

PATIENT
  Age: 4 Decade
  Sex: Female

DRUGS (2)
  1. ONGLYZA TABS [Suspect]
  2. JANUVIA [Suspect]

REACTIONS (1)
  - Papillary thyroid cancer [Unknown]
